FAERS Safety Report 8534043-3 (Version None)
Quarter: 2012Q3

REPORT INFORMATION
  Report Type: 
  Country: None (occurrence: None)
  Receive Date: 20120724
  Receipt Date: 20120720
  Transmission Date: 20120928
  Serious: Yes (Other)
  Sender: FDA-Public Use
  Company Number: GR-ROCHE-1091091

PATIENT

DRUGS (1)
  1. AVASTIN [Suspect]
     Indication: PRODUCT USED FOR UNKNOWN INDICATION
     Dosage: DOSE-5MG PER 2 WEEKS OR 7.5 MG PER 3 WEEKS

REACTIONS (2)
  - CEREBELLAR SYNDROME [None]
  - GAIT DISTURBANCE [None]
